FAERS Safety Report 7730842-6 (Version None)
Quarter: 2011Q3

REPORT INFORMATION
  Report Type: 
  Country: None (occurrence: None)
  Receive Date: 20110906
  Receipt Date: 20110824
  Transmission Date: 20111222
  Serious: Yes (Death, Hospitalization)
  Sender: FDA-Public Use
  Company Number: JP-ACTELION-A-JP2009-23365

PATIENT
  Sex: Female

DRUGS (9)
  1. MELOXICAM [Concomitant]
  2. PREDNISOLONE [Suspect]
     Dosage: UNK
     Dates: start: 20071001, end: 20091028
  3. BERAPROST SODIUM [Concomitant]
  4. TRACLEER [Suspect]
     Dosage: 62.5 MG, QD
     Route: 048
     Dates: start: 20080702, end: 20080709
  5. TRIMEBUTINE MALEATE [Concomitant]
  6. SARPOGRELATE HYDROCHLORIDE [Concomitant]
  7. CARBOCISTEINE [Concomitant]
  8. TRACLEER [Suspect]
     Indication: PULMONARY ARTERIAL HYPERTENSION
     Dosage: 62.5 MG, BID
     Route: 048
     Dates: start: 20080710, end: 20090930
  9. OMEPRAZOLE [Concomitant]

REACTIONS (27)
  - MECHANICAL VENTILATION [None]
  - RED BLOOD CELL ABNORMALITY [None]
  - TRANSFUSION [None]
  - ANAEMIA [None]
  - CIRCULATORY COLLAPSE [None]
  - HAEMORRHAGIC DIATHESIS [None]
  - THROMBOTIC THROMBOCYTOPENIC PURPURA [None]
  - HEPATOSPLENOMEGALY [None]
  - HAEMOGLOBIN DECREASED [None]
  - ASPARTATE AMINOTRANSFERASE INCREASED [None]
  - OLIGURIA [None]
  - HAEMODIALYSIS [None]
  - STAPHYLOCOCCAL BACTERAEMIA [None]
  - INFECTION [None]
  - MELAENA [None]
  - WHITE BLOOD CELL COUNT INCREASED [None]
  - DISSEMINATED INTRAVASCULAR COAGULATION [None]
  - GASTROINTESTINAL HAEMORRHAGE [None]
  - ALTERED STATE OF CONSCIOUSNESS [None]
  - PLATELET COUNT DECREASED [None]
  - CONVULSION [None]
  - HEPATITIS FULMINANT [None]
  - PLASMAPHERESIS [None]
  - TRIGEMINAL NEURALGIA [None]
  - PYREXIA [None]
  - ALANINE AMINOTRANSFERASE INCREASED [None]
  - RENAL IMPAIRMENT [None]
